FAERS Safety Report 19501805 (Version 1)
Quarter: 2021Q3

REPORT INFORMATION
  Report Type: Spontaneous
  Country: US (occurrence: US)
  Receive Date: 20210707
  Receipt Date: 20210707
  Transmission Date: 20211014
  Serious: Yes (Death)
  Sender: FDA-Public Use
  Company Number: US-CELGENEUS-USA-20210700517

PATIENT
  Age: 85 Year
  Sex: Female

DRUGS (1)
  1. AZACITIDINE ORAL (CC?486) [Suspect]
     Active Substance: AZACITIDINE
     Indication: ACUTE MYELOID LEUKAEMIA
     Route: 048
     Dates: start: 20201224, end: 20210214

REACTIONS (1)
  - Death [Fatal]

NARRATIVE: CASE EVENT DATE: 20210214
